FAERS Safety Report 23079215 (Version 2)
Quarter: 2023Q4

REPORT INFORMATION
  Report Type: Spontaneous
  Country: US (occurrence: US)
  Receive Date: 20231018
  Receipt Date: 20231020
  Transmission Date: 20240110
  Serious: Yes (Hospitalization, Other)
  Sender: FDA-Public Use
  Company Number: US-BRISTOL-MYERS SQUIBB COMPANY-2023-146740

PATIENT
  Age: 26 Year
  Sex: Male
  Weight: 83 kg

DRUGS (2)
  1. NULOJIX [Suspect]
     Active Substance: BELATACEPT
     Indication: Renal transplant
     Dosage: DOSE : 413.6 MG; 425 MG;     FREQ : EVERY 4 WEEKS
     Route: 042
  2. NULOJIX [Suspect]
     Active Substance: BELATACEPT
     Dosage: DOSE : 413.6 MG; 425 MG;     FREQ : EVERY 4 WEEKS
     Route: 042

REACTIONS (1)
  - Cardiac failure [Unknown]

NARRATIVE: CASE EVENT DATE: 20230904
